FAERS Safety Report 9068954 (Version 1)
Quarter: 2013Q1

REPORT INFORMATION
  Report Type: Spontaneous
  Country: AU (occurrence: None)
  Receive Date: 20130122
  Receipt Date: 20130122
  Transmission Date: 20140127
  Serious: Yes (Hospitalization)
  Sender: FDA-Public Use
  Company Number: 2013-000116

PATIENT
  Age: 91 Year
  Sex: Female

DRUGS (6)
  1. DORYX (DOXYCYCLINE HYCLATE) PROLONGED-RELEASE TABLET, 200MG [Suspect]
     Indication: UPPER RESPIRATORY TRACT INFECTION
     Route: 048
     Dates: start: 20120426, end: 20120501
  2. ALLOPURINOL [Concomitant]
  3. ASPIRIN (ACETYLSALICYLIC ACID) [Concomitant]
  4. FRUSEMIDE /00032601/ (FUROSEMIDE) [Concomitant]
  5. METOPROLOL TARTRATE (METOPROLOL TARTRATE) [Concomitant]
  6. PANTOPRAZOLE (PANTOPRAZOLE) [Concomitant]

REACTIONS (1)
  - Renal impairment [None]
